FAERS Safety Report 6663533-3 (Version None)
Quarter: 2010Q2

REPORT INFORMATION
  Report Type: 
  Country: None (occurrence: None)
  Receive Date: 20100401
  Receipt Date: 20100323
  Transmission Date: 20101027
  Serious: Yes (Death)
  Sender: FDA-Public Use
  Company Number: PL-PFIZER INC-2010030070

PATIENT
  Age: 70 Year
  Sex: Male
  Weight: 115.6 kg

DRUGS (10)
  1. PREDNISONE [Suspect]
     Indication: PROSTATE CANCER
     Dosage: 5 MG, 2X/DAY
     Route: 048
     Dates: start: 20091123, end: 20100307
  2. BLINDED *NO SUBJECT DRUG [Suspect]
     Indication: PROSTATE CANCER
     Dosage: 37.5 MG, 1X/DAY
     Route: 048
     Dates: start: 20091123, end: 20100307
  3. BLINDED *PLACEBO [Suspect]
     Indication: PROSTATE CANCER
     Dosage: 37.5 MG, 1X/DAY
     Route: 048
     Dates: start: 20091123, end: 20100307
  4. BLINDED SUNITINIB MALATE [Suspect]
     Indication: PROSTATE CANCER
     Dosage: 37.5 MG, 1X/DAY
     Route: 048
     Dates: start: 20091123, end: 20100307
  5. FUROSEMID [Concomitant]
     Dosage: UNK
     Dates: start: 20090101
  6. KALDYUM [Concomitant]
     Dosage: UNK
     Dates: start: 20090101
  7. SPIRONOL [Concomitant]
     Dosage: UNK
     Dates: start: 20090101
  8. THEOSPIREX [Concomitant]
     Dosage: UNK
     Dates: start: 20090101
  9. POLPRAZOL [Concomitant]
     Dosage: UNK
     Dates: start: 20100101
  10. LOPERAMIDE HYDROCHLORIDE [Concomitant]
     Dosage: UNK
     Dates: start: 20100101

REACTIONS (1)
  - DEATH [None]
